FAERS Safety Report 6102095-6 (Version None)
Quarter: 2009Q1

REPORT INFORMATION
  Report Type: 
  Country: None (occurrence: None)
  Receive Date: 20090303
  Receipt Date: 20090303
  Transmission Date: 20090719
  Serious: Yes (Hospitalization)
  Sender: FDA-Public Use
  Company Number: None

PATIENT
  Sex: Female
  Weight: 60.5 kg

DRUGS (1)
  1. CELEBREX [Suspect]
     Indication: ACCIDENT AT WORK
     Dosage: 200MG DAILY PO
     Route: 048
     Dates: start: 20090201, end: 20090214

REACTIONS (3)
  - CONFUSIONAL STATE [None]
  - HEPATIC ENZYME INCREASED [None]
  - HEPATOTOXICITY [None]
